FAERS Safety Report 16347996 (Version 1)
Quarter: 2019Q2

REPORT INFORMATION
  Report Type: Spontaneous
  Country: US (occurrence: US)
  Receive Date: 20190417
  Receipt Date: 20190417
  Transmission Date: 20190711
  Serious: Yes (Hospitalization)
  Sender: FDA-Public Use
  Company Number: None

PATIENT
  Age: 48 Year
  Sex: Male
  Weight: 99.7 kg

DRUGS (4)
  1. CYCLOPHOSPHAMIDE. [Suspect]
     Active Substance: CYCLOPHOSPHAMIDE
     Dates: end: 20190402
  2. ONCASPAR [Suspect]
     Active Substance: PEGASPARGASE
     Dates: end: 20190318
  3. CYTARABINE. [Suspect]
     Active Substance: CYTARABINE
     Dates: end: 20190402
  4. MERCAPTOPURINE. [Suspect]
     Active Substance: MERCAPTOPURINE
     Dates: end: 20190329

REACTIONS (11)
  - Palpitations [None]
  - Dizziness [None]
  - Muscular weakness [None]
  - Paraesthesia [None]
  - Decreased appetite [None]
  - Blood pressure decreased [None]
  - Nausea [None]
  - Vitreous floaters [None]
  - Weight decreased [None]
  - Dry mouth [None]
  - Headache [None]

NARRATIVE: CASE EVENT DATE: 20190401
